FAERS Safety Report 7368560-9 (Version None)
Quarter: 2011Q1

REPORT INFORMATION
  Report Type: 
  Country: None (occurrence: None)
  Receive Date: 20110317
  Receipt Date: 20110317
  Transmission Date: 20110831
  Serious: Yes (Other)
  Sender: FDA-Public Use
  Company Number: None

PATIENT
  Sex: Female

DRUGS (1)
  1. PYRIDOSTIGMINE BROMIDE [Suspect]
     Indication: MYASTHENIA GRAVIS
     Dosage: MESTINON 60 MG GENERIC 1 TAB 2XDAILY ORAL
     Route: 048
     Dates: start: 20100830, end: 20100909

REACTIONS (2)
  - VISION BLURRED [None]
  - PALPITATIONS [None]
